FAERS Safety Report 7557612-6 (Version None)
Quarter: 2011Q2

REPORT INFORMATION
  Report Type: 
  Country: None (occurrence: None)
  Receive Date: 20110620
  Receipt Date: 20110608
  Transmission Date: 20111010
  Serious: Yes (Death)
  Sender: FDA-Public Use
  Company Number: TR-ACTELION-A-CH2011-50041

PATIENT
  Sex: Male
  Weight: 6 kg

DRUGS (3)
  1. DIDERAL [Concomitant]
  2. TRACLEER [Suspect]
     Indication: PULMONARY ARTERIAL HYPERTENSION
     Dosage: 12 MG, QD
     Route: 048
     Dates: start: 20101124
  3. VIAGRA [Concomitant]

REACTIONS (4)
  - PROCEDURAL HYPOTENSION [None]
  - CARDIAC OPERATION [None]
  - BRADYCARDIA [None]
  - RESUSCITATION [None]
